FAERS Safety Report 6508049-X (Version None)
Quarter: 2009Q4

REPORT INFORMATION
  Report Type: 
  Country: None (occurrence: None)
  Receive Date: 20091221
  Receipt Date: 20091215
  Transmission Date: 20100525
  Serious: Yes (Hospitalization)
  Sender: FDA-Public Use
  Company Number: US-B.I. PHARMACEUTICALS,INC./RIDGEFIELD-2009-BP-14468BP

PATIENT
  Sex: Female

DRUGS (1)
  1. CATAPRES-TTS-1 [Suspect]
     Indication: BLOOD PRESSURE MANAGEMENT
     Route: 061

REACTIONS (3)
  - INFLUENZA [None]
  - PNEUMONIA [None]
  - SCAR [None]
